FAERS Safety Report 5019353-9 (Version None)
Quarter: 2006Q2

REPORT INFORMATION
  Report Type: 
  Country: None (occurrence: None)
  Receive Date: 20060531
  Receipt Date: 20060522
  Transmission Date: 20061013
  Serious: Yes (Disabling, Congenital Anomaly)
  Sender: FDA-Public Use
  Company Number: 2006060503

PATIENT
  Age: 68 Year
  Sex: Female
  Weight: 63.8 kg

DRUGS (1)
  1. SUTENT [Suspect]
     Indication: GASTROINTESTINAL STROMAL TUMOUR
     Dosage: 37.5 MG (INTERVAL: EVERYDAY) ORAL
     Route: 048
     Dates: start: 20060214, end: 20060423

REACTIONS (5)
  - BLOOD ALBUMIN DECREASED [None]
  - DYSPNOEA EXERTIONAL [None]
  - PLEURAL EFFUSION [None]
  - PULMONARY EMBOLISM [None]
  - THROMBOCYTOPENIA [None]
